FAERS Safety Report 19821056 (Version 1)
Quarter: 2021Q3

REPORT INFORMATION
  Report Type: Report from Study
  Country: BR (occurrence: BR)
  Receive Date: 20210913
  Receipt Date: 20210913
  Transmission Date: 20211014
  Serious: Yes (Death)
  Sender: FDA-Public Use
  Company Number: NVSC2021BR206592

PATIENT
  Sex: Female

DRUGS (1)
  1. EXELON [Suspect]
     Active Substance: RIVASTIGMINE TARTRATE
     Indication: PRODUCT USED FOR UNKNOWN INDICATION
     Dosage: 13.3 MG, QD (PATCH 15) (STARTED 17 YEARS AGO)
     Route: 062

REACTIONS (5)
  - Multiple organ dysfunction syndrome [Fatal]
  - Motor dysfunction [Fatal]
  - Vital functions abnormal [Fatal]
  - Cerebrovascular accident [Fatal]
  - Infection [Fatal]
